FAERS Safety Report 14602740 (Version 1)
Quarter: 2018Q1

REPORT INFORMATION
  Report Type: Spontaneous
  Country: IT (occurrence: IT)
  Receive Date: 20180306
  Receipt Date: 20180306
  Transmission Date: 20180509
  Serious: Yes (Other)
  Sender: FDA-Public Use
  Company Number: PHHY2017IT071554

PATIENT
  Age: 35 Year
  Sex: Male
  Weight: 120 kg

DRUGS (6)
  1. TACHIPIRINA [Suspect]
     Active Substance: ACETAMINOPHEN
     Dosage: 3 G, QD
     Route: 048
     Dates: start: 20170326
  2. VARILRIX [Suspect]
     Active Substance: VARICELLA-ZOSTER VIRUS STRAIN OKA/MERCK LIVE ANTIGEN
     Indication: VARICELLA IMMUNISATION
     Dosage: 0.5 ML, TOTAL
     Route: 030
     Dates: start: 20170315
  3. TACHIPIRINA [Suspect]
     Active Substance: ACETAMINOPHEN
     Indication: PYREXIA
     Dosage: 3 G, QD
     Route: 048
     Dates: start: 20170319
  4. LEVOFLOXACIN. [Suspect]
     Active Substance: LEVOFLOXACIN
     Dosage: 500 MG, QD
     Route: 048
     Dates: start: 20170402
  5. M-M-RVAXPRO [Suspect]
     Active Substance: MEASLES VIRUS STRAIN ENDERS^ ATTENUATED EDMONSTON LIVE ANTIGEN\MUMPS VIRUS STRAIN B LEVEL JERYL LYNN LIVE ANTIGEN\RUBELLA VIRUS STRAIN WISTAR RA 27/3 LIVE ANTIGEN
     Indication: MEASLES IMMUNISATION
     Dosage: 0.5 ML, TOTAL
     Route: 030
     Dates: start: 20170315
  6. LEVOFLOXACIN. [Suspect]
     Active Substance: LEVOFLOXACIN
     Indication: PNEUMONIA
     Dosage: 500 MG, QD
     Route: 048
     Dates: start: 20170319

REACTIONS (6)
  - Hepatocellular injury [Recovered/Resolved]
  - Pneumonia [Recovered/Resolved]
  - Hyperthermia [Recovered/Resolved]
  - Pain in extremity [Recovered/Resolved]
  - Pneumonia [Unknown]
  - Hepatotoxicity [Recovered/Resolved]

NARRATIVE: CASE EVENT DATE: 20170319
